FAERS Safety Report 24224961 (Version 2)
Quarter: 2024Q3

REPORT INFORMATION
  Report Type: Report from Study
  Country: US (occurrence: US)
  Receive Date: 20240820
  Receipt Date: 20240828
  Transmission Date: 20241016
  Serious: Yes (Hospitalization, Other)
  Sender: ABBVIE
  Company Number: US-ABBVIE-5880942

PATIENT
  Age: 67 Year
  Sex: Male
  Weight: 86 kg

DRUGS (5)
  1. VENCLEXTA [Suspect]
     Active Substance: VENETOCLAX
     Indication: Acute myeloid leukaemia
     Route: 048
     Dates: start: 202305
  2. FLUCONAZOLE F [Concomitant]
     Indication: Infection prophylaxis
  3. ALLOPURINOL [Concomitant]
     Active Substance: ALLOPURINOL
     Indication: Product used for unknown indication
  4. ACYCLOVIR [Concomitant]
     Active Substance: ACYCLOVIR
     Indication: Infection prophylaxis
  5. METOPROLOL [Concomitant]
     Active Substance: METOPROLOL
     Indication: Hypertension

REACTIONS (11)
  - Wound secretion [Not Recovered/Not Resolved]
  - Impaired healing [Not Recovered/Not Resolved]
  - Cholecystitis [Recovered/Resolved]
  - Ingrowing nail [Not Recovered/Not Resolved]
  - Abdominal pain [Recovered/Resolved]
  - Wound secretion [Not Recovered/Not Resolved]
  - Impaired healing [Not Recovered/Not Resolved]
  - Acute cholecystitis necrotic [Recovered/Resolved]
  - Gallbladder enlargement [Recovered/Resolved]
  - Platelet transfusion [Unknown]
  - White blood cell disorder [Unknown]

NARRATIVE: CASE EVENT DATE: 20231101
